FAERS Safety Report 5163579-0 (Version None)
Quarter: 2006Q4

REPORT INFORMATION
  Report Type: 
  Country: None (occurrence: None)
  Receive Date: 20061128
  Receipt Date: 20061128
  Transmission Date: 20070319
  Serious: Yes (Hospitalization)
  Sender: FDA-Public Use
  Company Number: None

PATIENT
  Sex: Female
  Weight: 53.0709 kg

DRUGS (4)
  1. ROZEREM [Suspect]
     Indication: PARASOMNIA
     Dosage: 8 MG 1 HS PO
     Route: 048
     Dates: start: 20061023, end: 20061026
  2. ROZEREM [Suspect]
     Indication: SLEEP TERROR
     Dosage: 8 MG 1 HS PO
     Route: 048
     Dates: start: 20061023, end: 20061026
  3. FLUOXETINE [Concomitant]
  4. CLONAZEPAM [Concomitant]

REACTIONS (1)
  - PANCREATITIS [None]
